FAERS Safety Report 8168422-3 (Version None)
Quarter: 2012Q1

REPORT INFORMATION
  Report Type: 
  Country: None (occurrence: None)
  Receive Date: 20120227
  Receipt Date: 20120216
  Transmission Date: 20120608
  Serious: Yes (Hospitalization)
  Sender: FDA-Public Use
  Company Number: US-BAYER-2011-069931

PATIENT
  Age: 43 Year
  Sex: Female
  Weight: 100 kg

DRUGS (9)
  1. MYERS B5, B6, B COMPLEX, B12, MG/CALCIUM/VITAMIN C 10CC/5GM [Concomitant]
     Dosage: 60 ML, UNK
     Route: 042
  2. CYTOMEL [Concomitant]
     Dosage: 25 ?G, BID
  3. INDERAL [Concomitant]
     Indication: MIGRAINE
  4. INDERAL [Concomitant]
     Indication: BLOOD PRESSURE ABNORMAL
  5. YASMIN [Suspect]
     Indication: CONTRACEPTION
     Dosage: UNK
     Dates: start: 20010101
  6. SYNTHROID [Concomitant]
     Dosage: 75 ?G, UNK
  7. YAZ [Suspect]
     Indication: CONTRACEPTION
     Dosage: UNK
     Dates: start: 20010101
  8. DROSPIRENONE AND ETHINYL ESTRADIOL [Suspect]
     Indication: CONTRACEPTION
     Dosage: UNK
     Dates: start: 20010101
  9. GLUTATHIONE [Concomitant]
     Dosage: 1000 MG, UNK

REACTIONS (4)
  - PAIN [None]
  - PULMONARY EMBOLISM [None]
  - ANXIETY [None]
  - EMOTIONAL DISTRESS [None]
